FAERS Safety Report 7636977-0 (Version None)
Quarter: 2011Q3

REPORT INFORMATION
  Report Type: 
  Country: None (occurrence: None)
  Receive Date: 20110726
  Receipt Date: 20110702
  Transmission Date: 20111222
  Serious: Yes (Death, Other)
  Sender: FDA-Public Use
  Company Number: PHHY2011JP61089

PATIENT
  Age: 69 Year
  Sex: Male

DRUGS (1)
  1. CYCLOSPORINE [Suspect]
     Dosage: 200 MG/DAY

REACTIONS (15)
  - BLOOD CREATININE INCREASED [None]
  - NEPHROPATHY [None]
  - WEIGHT DECREASED [None]
  - RENAL TUBULAR ATROPHY [None]
  - PNEUMOCYSTIS JIROVECI PNEUMONIA [None]
  - CREATININE RENAL CLEARANCE DECREASED [None]
  - BENCE JONES PROTEIN URINE PRESENT [None]
  - RESPIRATORY FAILURE [None]
  - BLOOD UREA INCREASED [None]
  - HYPERCALCAEMIA [None]
  - RENAL IMPAIRMENT [None]
  - KIDNEY FIBROSIS [None]
  - ANAEMIA [None]
  - HERPES ZOSTER [None]
  - PNEUMONIA CYTOMEGALOVIRAL [None]
